FAERS Safety Report 16462263 (Version 1)
Quarter: 2019Q2

REPORT INFORMATION
  Report Type: Spontaneous
  Country: US (occurrence: US)
  Receive Date: 20190510
  Receipt Date: 20190510
  Transmission Date: 20190711
  Serious: Yes (Hospitalization)
  Sender: FDA-Public Use
  Company Number: None

PATIENT
  Age: 43 Year
  Sex: Male
  Weight: 83.92 kg

DRUGS (3)
  1. CISPLATIN. [Suspect]
     Active Substance: CISPLATIN
     Dates: end: 20190417
  2. TAXOL [Suspect]
     Active Substance: PACLITAXEL
     Dates: end: 20190417
  3. IFOSFAMIDE. [Suspect]
     Active Substance: IFOSFAMIDE
     Dates: end: 20190417

REACTIONS (9)
  - Neutrophil count decreased [None]
  - Blood magnesium decreased [None]
  - Tenderness [None]
  - Erythema [None]
  - Chest pain [None]
  - Dyspnoea exertional [None]
  - Cellulitis [None]
  - Haemoglobin decreased [None]
  - Neutropenia [None]

NARRATIVE: CASE EVENT DATE: 20190506
